FAERS Safety Report 6098200-0 (Version None)
Quarter: 2009Q1

REPORT INFORMATION
  Report Type: 
  Country: None (occurrence: None)
  Receive Date: 20090227
  Receipt Date: 20090219
  Transmission Date: 20090719
  Serious: Yes (Hospitalization)
  Sender: FDA-Public Use
  Company Number: US-ELI_LILLY_AND_COMPANY-US200902004818

PATIENT
  Sex: Female
  Weight: 74.83 kg

DRUGS (3)
  1. ZYPREXA [Suspect]
     Dosage: 20 MG, EACH EVENING
     Dates: start: 19800101, end: 20070101
  2. HALOPERIDOL [Concomitant]
     Dates: start: 20070101
  3. PERPHENAZINE [Concomitant]
     Dates: start: 20070101

REACTIONS (1)
  - MENTAL DISORDER [None]
